FAERS Safety Report 10491291 (Version 4)
Quarter: 2016Q1

REPORT INFORMATION
  Report Type: Spontaneous
  Country: US (occurrence: US)
  Receive Date: 20141002
  Receipt Date: 20160219
  Transmission Date: 20160525
  Serious: Yes (Other)
  Sender: FDA-Public Use
  Company Number: US-GLAXOSMITHKLINE-A1050661A

PATIENT
  Age: 73 Year
  Sex: Female

DRUGS (2)
  1. ADVAIR HFA [Suspect]
     Active Substance: FLUTICASONE PROPIONATE\SALMETEROL XINAFOATE
     Dosage: 500/50 MCG, UNK
     Route: 055
     Dates: start: 20131001
  2. VENTOLIN HFA [Suspect]
     Active Substance: ALBUTEROL SULFATE
     Indication: CHRONIC OBSTRUCTIVE PULMONARY DISEASE
     Dosage: 1 PUFF(S), QD
     Route: 055
     Dates: start: 2015, end: 2015

REACTIONS (16)
  - Pain [Recovered/Resolved]
  - Musculoskeletal disorder [Unknown]
  - Gingival blister [Not Recovered/Not Resolved]
  - Tongue ulceration [Recovering/Resolving]
  - Gingival ulceration [Recovered/Resolved]
  - Hip surgery [Unknown]
  - Mouth ulceration [Recovered/Resolved]
  - Underdose [Recovered/Resolved]
  - Gingival swelling [Not Recovered/Not Resolved]
  - Stomatitis [Unknown]
  - Tongue disorder [Unknown]
  - Memory impairment [Unknown]
  - Oropharyngeal pain [Unknown]
  - Glossodynia [Unknown]
  - Oral disorder [Unknown]
  - Tongue disorder [Recovering/Resolving]

NARRATIVE: CASE EVENT DATE: 201311
